FAERS Safety Report 5165312-5 (Version None)
Quarter: 2006Q4

REPORT INFORMATION
  Report Type: 
  Country: None (occurrence: None)
  Receive Date: 20061206
  Receipt Date: 20061125
  Transmission Date: 20070319
  Serious: Yes (Other)
  Sender: FDA-Public Use
  Company Number: DE-JNJFOC-20061105554

PATIENT
  Sex: Male

DRUGS (5)
  1. REMICADE [Suspect]
     Dosage: 2ND INFUSION
     Route: 042
  2. REMICADE [Suspect]
     Indication: PSORIASIS
     Dosage: 1ST INFUSION
     Route: 042
  3. RENACOR [Concomitant]
     Route: 048
  4. ASPIRIN [Concomitant]
     Route: 048
  5. NEXIUM [Concomitant]
     Route: 048

REACTIONS (2)
  - PAIN IN EXTREMITY [None]
  - PARAESTHESIA [None]
